FAERS Safety Report 5239978-5 (Version None)
Quarter: 2007Q1

REPORT INFORMATION
  Report Type: 
  Country: None (occurrence: None)
  Receive Date: 20070216
  Receipt Date: 20070205
  Transmission Date: 20070707
  Serious: Yes (Other)
  Sender: FDA-Public Use
  Company Number: US-PFIZER INC-2006155877

PATIENT
  Sex: Female
  Weight: 45.4 kg

DRUGS (13)
  1. LYRICA [Suspect]
     Indication: MUSCLE SPASMS
     Dates: start: 20061218, end: 20061221
  2. SYNTHROID [Concomitant]
     Dosage: DAILY DOSE:.188MG-FREQ:DAILY
  3. THEOPHYLLINE [Concomitant]
  4. ALDACTONE [Concomitant]
     Indication: HYPERTENSION
     Dates: start: 19980201
  5. ALBUTEROL [Concomitant]
  6. ATROVENT [Concomitant]
  7. BENADRYL [Concomitant]
     Dates: start: 19280101
  8. TYLENOL (CAPLET) [Concomitant]
  9. PROMETHAZINE [Concomitant]
     Route: 048
  10. CALTRATE + D [Concomitant]
  11. LISINOPRIL [Concomitant]
  12. FOSAMAX [Concomitant]
     Dates: start: 20061006
  13. AMMONIUM LACTATE [Concomitant]
     Route: 061
     Dates: start: 20061201

REACTIONS (4)
  - CEREBRAL DISORDER [None]
  - DRUG INEFFECTIVE [None]
  - EXTREMITY CONTRACTURE [None]
  - PAIN [None]
